FAERS Safety Report 18447338 (Version 1)
Quarter: 2020Q4

REPORT INFORMATION
  Report Type: Spontaneous
  Country: US (occurrence: US)
  Receive Date: 20201030
  Receipt Date: 20201030
  Transmission Date: 20210114
  Serious: Yes (Death)
  Sender: FDA-Public Use
  Company Number: None

PATIENT
  Age: 63 Year
  Sex: Male

DRUGS (8)
  1. TACROLIMUS. [Suspect]
     Active Substance: TACROLIMUS
     Indication: RENAL TRANSPLANT
     Route: 048
     Dates: start: 20161108, end: 20201022
  2. NOVOLOG [Concomitant]
     Active Substance: INSULIN ASPART
  3. MYCOPHENOLIC [Suspect]
     Active Substance: MYCOPHENOLIC ACID
     Indication: RENAL TRANSPLANT
     Route: 048
     Dates: start: 20161112, end: 20201022
  4. FUROSEMIDE. [Concomitant]
     Active Substance: FUROSEMIDE
  5. DOXYCYCLINE HYCLA [Concomitant]
  6. LEVEMIR [Concomitant]
     Active Substance: INSULIN DETEMIR
  7. RAMIPRIL. [Concomitant]
     Active Substance: RAMIPRIL
  8. PRAVASTATIN. [Concomitant]
     Active Substance: PRAVASTATIN

REACTIONS (1)
  - Death [None]

NARRATIVE: CASE EVENT DATE: 20201022
